FAERS Safety Report 8558725-2 (Version None)
Quarter: 2012Q3

REPORT INFORMATION
  Report Type: 
  Country: None (occurrence: None)
  Receive Date: 20120801
  Receipt Date: 20120723
  Transmission Date: 20120928
  Serious: No
  Sender: FDA-Public Use
  Company Number: US-009507513-1207USA009535

PATIENT

DRUGS (1)
  1. ZETIA [Suspect]
     Indication: LIPIDS DECREASED
     Dosage: 10 MG, QD
     Route: 048
     Dates: end: 20120701

REACTIONS (1)
  - MYALGIA [None]
